FAERS Safety Report 7054726-4 (Version None)
Quarter: 2010Q4

REPORT INFORMATION
  Report Type: 
  Country: None (occurrence: None)
  Receive Date: 20101015
  Receipt Date: 20100930
  Transmission Date: 20110411
  Serious: No
  Sender: FDA-Public Use
  Company Number: 2010090079

PATIENT
  Age: 40 Year
  Sex: Female

DRUGS (13)
  1. ONSOLIS [Suspect]
     Indication: CANCER PAIN
     Dosage: SEE IMAGE
     Route: 002
     Dates: start: 20100525, end: 20100601
  2. ONSOLIS [Suspect]
     Indication: CANCER PAIN
     Dosage: SEE IMAGE
     Route: 002
     Dates: start: 20100602
  3. FENTANYL-100 [Concomitant]
  4. METHADONE HCL [Concomitant]
  5. FLECTOR (DICLOFENAC) [Concomitant]
  6. MARINOL [Concomitant]
  7. INSULIN REG (INSULIN) [Concomitant]
  8. LANTUS [Concomitant]
  9. KCL TAB [Concomitant]
  10. PROZAC [Concomitant]
  11. ZOFRAN [Concomitant]
  12. OXYFAST (OXYCODONE) [Concomitant]
  13. LIDOCAINE/MAALOX SWISH (LIDOCAINE, BISMUTH SUBSALICYLATE) [Concomitant]

REACTIONS (3)
  - CONDITION AGGRAVATED [None]
  - INCORRECT DOSE ADMINISTERED [None]
  - PAIN [None]
